FAERS Safety Report 17513322 (Version 1)
Quarter: 2020Q1

REPORT INFORMATION
  Report Type: Report from Study
  Country: GB (occurrence: GB)
  Receive Date: 20200306
  Receipt Date: 20200306
  Transmission Date: 20200409
  Serious: Yes (Hospitalization, Other)
  Sender: FDA-Public Use
  Company Number: GB-JNJFOC-20191111920

PATIENT
  Sex: Male

DRUGS (1)
  1. STELARA [Suspect]
     Active Substance: USTEKINUMAB
     Indication: PSORIASIS
     Route: 058
     Dates: start: 2018

REACTIONS (7)
  - Abdominal pain [Unknown]
  - Psoriasis [Unknown]
  - Product dose omission [Unknown]
  - Herpes zoster [Unknown]
  - Lower respiratory tract infection [Unknown]
  - Weight decreased [Unknown]
  - Asthenia [Unknown]
